FAERS Safety Report 16487194 (Version 1)
Quarter: 2019Q3

REPORT INFORMATION
  Report Type: Spontaneous
  Country: US (occurrence: US)
  Receive Date: 20190626
  Receipt Date: 20190626
  Transmission Date: 20191004
  Serious: No
  Sender: FDA-Public Use
  Company Number: None

PATIENT
  Age: 29 Year
  Sex: Female
  Weight: 61.2 kg

DRUGS (4)
  1. AIMOVIG [Suspect]
     Active Substance: ERENUMAB-AOOE
     Indication: MIGRAINE
     Dosage: ?          QUANTITY:1 INJECTION(S);?
     Route: 058
     Dates: start: 20190613
  2. MAGNESIUM 500 MG [Concomitant]
  3. SUMATRIPTAN 100MG [Concomitant]
     Active Substance: SUMATRIPTAN
  4. PAXIL [Concomitant]
     Active Substance: PAROXETINE HYDROCHLORIDE

REACTIONS (4)
  - Neck pain [None]
  - Constipation [None]
  - Migraine [None]
  - Heart rate increased [None]

NARRATIVE: CASE EVENT DATE: 20190617
